FAERS Safety Report 4617466-4 (Version None)
Quarter: 2005Q1

REPORT INFORMATION
  Report Type: 
  Country: None (occurrence: None)
  Receive Date: 20050318
  Receipt Date: 20050303
  Transmission Date: 20050727
  Serious: Yes (Hospitalization)
  Sender: FDA-Public Use
  Company Number: 2005-DE-00848GD

PATIENT
  Age: 10 Year
  Sex: Male

DRUGS (1)
  1. CLONIDINE [Suspect]
     Dosage: 3 G (0.1 MG)
     Route: 048

REACTIONS (5)
  - ACCIDENTAL OVERDOSE [None]
  - BLOOD PRESSURE DECREASED [None]
  - DEPRESSED LEVEL OF CONSCIOUSNESS [None]
  - DRUG TOXICITY [None]
  - MEDICATION ERROR [None]
